FAERS Safety Report 7218361-7 (Version None)
Quarter: 2011Q1

REPORT INFORMATION
  Report Type: 
  Country: None (occurrence: None)
  Receive Date: 20110110
  Receipt Date: 20101231
  Transmission Date: 20110831
  Serious: Yes (Hospitalization)
  Sender: FDA-Public Use
  Company Number: PHHO2010GB19784

PATIENT
  Sex: Male
  Weight: 70.8 kg

DRUGS (5)
  1. AFINITOR [Suspect]
     Indication: METASTATIC SQUAMOUS CELL CARCINOMA
     Dosage: 10 MG, WEEKLY
     Route: 048
     Dates: start: 20101019
  2. DOCETAXEL [Suspect]
     Indication: METASTATIC SQUAMOUS CELL CARCINOMA
     Dosage: 140 MG, 3 WEEKLY
     Route: 042
     Dates: start: 20101019
  3. NOVOMIX [Concomitant]
     Indication: DIABETES MELLITUS
  4. RAMIPRIL [Concomitant]
     Indication: HYPERTENSION
  5. PRAVASTATIN [Concomitant]
     Indication: HYPERCHOLESTEROLAEMIA

REACTIONS (4)
  - PYREXIA [None]
  - INFECTION [None]
  - HYPOXIA [None]
  - PULMONARY EMBOLISM [None]
